FAERS Safety Report 5092381-3 (Version None)
Quarter: 2006Q3

REPORT INFORMATION
  Report Type: 
  Country: None (occurrence: None)
  Receive Date: 20060825
  Receipt Date: 20060814
  Transmission Date: 20061208
  Serious: Yes (Hospitalization)
  Sender: FDA-Public Use
  Company Number: 228728

PATIENT
  Age: 45 Year
  Sex: Female
  Weight: 63.5 kg

DRUGS (6)
  1. BEVACIZUMAB (BEVACIZUMAB)PWDR + SOLVENT, INFUSION SOLN, 100MG [Suspect]
     Indication: BREAST CANCER METASTATIC
     Dosage: 163 MG, 1/WEEK, INTRAVENOUS
     Route: 042
     Dates: start: 20060111, end: 20060629
  2. TRASTUZUMAB (TRASTUZUMAB) PWDR + SOLVENT, INFUSION SOLN, 440MG [Suspect]
     Indication: BREAST CANCER METASTATIC
     Dosage: 152 MG, 1/WEEK, INTRAVENOUS
     Route: 042
     Dates: start: 20060111, end: 20060629
  3. ULTRAM [Concomitant]
  4. ZESTRIL [Concomitant]
  5. CLONIDINE [Concomitant]
  6. PROTONIX [Concomitant]

REACTIONS (8)
  - BLOOD PRESSURE INCREASED [None]
  - DIZZINESS [None]
  - HEADACHE [None]
  - HYPOAESTHESIA FACIAL [None]
  - LOSS OF CONSCIOUSNESS [None]
  - METASTASES TO CENTRAL NERVOUS SYSTEM [None]
  - NECK PAIN [None]
  - PARAESTHESIA [None]
